FAERS Safety Report 5826350-X (Version None)
Quarter: 2008Q3

REPORT INFORMATION
  Report Type: 
  Country: None (occurrence: None)
  Receive Date: 20080724
  Receipt Date: 20080709
  Transmission Date: 20090109
  Serious: Yes (Other)
  Sender: FDA-Public Use
  Company Number: 19756

PATIENT
  Age: 9 Year
  Sex: Male
  Weight: 27.55 kg

DRUGS (5)
  1. METHOTREXATE [Suspect]
     Dosage: 12.5 MG WEEKLY SC
     Route: 058
     Dates: start: 20051123
  2. METHOTREXATE [Suspect]
     Dosage: 17.5 MG WEEKLY SC
     Route: 058
     Dates: start: 20060125
  3. METHOTREXATE [Suspect]
     Dosage: 20 MG WEEKLY SC
     Route: 058
     Dates: start: 20060307
  4. METHOTREXATE [Suspect]
     Dosage: 20 MG WEEKLY PO
     Route: 048
     Dates: start: 20070322
  5. ETANERCEPT [Suspect]

REACTIONS (8)
  - ANAEMIA [None]
  - BLOOD DISORDER [None]
  - C-REACTIVE PROTEIN INCREASED [None]
  - DISEASE PROGRESSION [None]
  - MICROCYTOSIS [None]
  - NEUTROPHILIA [None]
  - RED BLOOD CELL SEDIMENTATION RATE INCREASED [None]
  - THROMBOCYTHAEMIA [None]
